FAERS Safety Report 25622127 (Version 1)
Quarter: 2025Q3

REPORT INFORMATION
  Report Type: Report from Study
  Country: CA (occurrence: CA)
  Receive Date: 20250730
  Receipt Date: 20250730
  Transmission Date: 20251020
  Serious: Yes (Other)
  Sender: SAMSUNG BIOEPIS
  Company Number: CA-SAMSUNG BIOEPIS-SB-2025-24589

PATIENT
  Age: 74 Year
  Sex: Female

DRUGS (1)
  1. HADLIMA [Suspect]
     Active Substance: ADALIMUMAB-BWWD
     Indication: Psoriatic arthropathy
     Dosage: 40MG/0.4ML;
     Dates: start: 20241113

REACTIONS (10)
  - Cardiac failure congestive [Unknown]
  - Respiratory tract congestion [Unknown]
  - Cardiac disorder [Unknown]
  - Generalised oedema [Unknown]
  - Dizziness [Not Recovered/Not Resolved]
  - Aphasia [Unknown]
  - Visual impairment [Unknown]
  - Headache [Unknown]
  - Off label use [Unknown]
  - Expired product administered [Unknown]
